FAERS Safety Report 6689090-3 (Version None)
Quarter: 2010Q2

REPORT INFORMATION
  Report Type: 
  Country: None (occurrence: None)
  Receive Date: 20100420
  Receipt Date: 20100413
  Transmission Date: 20101027
  Serious: Yes (Hospitalization)
  Sender: FDA-Public Use
  Company Number: JP-NOVOPROD-305021

PATIENT
  Age: 72 Year
  Sex: Male
  Weight: 63 kg

DRUGS (8)
  1. LEVEMIR [Suspect]
     Indication: TYPE 2 DIABETES MELLITUS
     Dosage: 26 U, QD
     Route: 058
     Dates: start: 20081111
  2. NORVASC [Concomitant]
     Dosage: 10 MG, QD
     Route: 048
  3. COVERSYL                           /00790701/ [Concomitant]
     Dosage: 4 MG, QD
     Route: 048
  4. DOXAZOSIN MESYLATE [Concomitant]
     Dosage: 2 MG, QD
     Route: 048
  5. OLMESARTAN MEDOXOMIL [Concomitant]
     Dosage: 20 MG, QD
     Route: 048
  6. ARTIST [Concomitant]
     Dosage: 15 MG, QD
     Route: 048
  7. KINEDAK [Concomitant]
     Dosage: 150 MG, QD
     Route: 048
  8. METHYLCOBAL [Concomitant]
     Dosage: 1500 MG, QD
     Route: 048

REACTIONS (1)
  - SICK SINUS SYNDROME [None]
